FAERS Safety Report 19298660 (Version 2)
Quarter: 2021Q4

REPORT INFORMATION
  Report Type: Spontaneous
  Country: GB (occurrence: GB)
  Receive Date: 20210525
  Receipt Date: 20211203
  Transmission Date: 20220303
  Serious: Yes (Other)
  Sender: FDA-Public Use
  Company Number: GB-MHRA-EYC 00250261

PATIENT
  Age: 62 Year
  Sex: Male
  Weight: 110 kg

DRUGS (1)
  1. ALFUZOSIN [Suspect]
     Active Substance: ALFUZOSIN
     Indication: Urinary retention
     Dosage: 10MG PROLONGED RELEASE TABLET ONCE DAILY
     Route: 048
     Dates: start: 20210505, end: 20210511

REACTIONS (2)
  - Oropharyngeal pain [Not Recovered/Not Resolved]
  - Dry mouth [Unknown]

NARRATIVE: CASE EVENT DATE: 20210509
